FAERS Safety Report 4657924-X (Version None)
Quarter: 2005Q2

REPORT INFORMATION
  Report Type: 
  Country: None (occurrence: None)
  Receive Date: 20050504
  Receipt Date: 20040614
  Transmission Date: 20051028
  Serious: Yes (Other)
  Sender: FDA-Public Use
  Company Number: 001748

PATIENT
  Sex: Female

DRUGS (2)
  1. CENESTIN [Suspect]
     Dates: start: 20000101, end: 20010101
  2. MEDROXYPROGESTERONE ACETATE [Suspect]
     Dates: start: 20000101, end: 20010101

REACTIONS (2)
  - BREAST CANCER [None]
  - PAIN [None]
